FAERS Safety Report 5807409-X (Version None)
Quarter: 2008Q3

REPORT INFORMATION
  Report Type: 
  Country: None (occurrence: None)
  Receive Date: 20080711
  Receipt Date: 20080704
  Transmission Date: 20090109
  Serious: Yes (Hospitalization)
  Sender: FDA-Public Use
  Company Number: FR-JNJFOC-20080700947

PATIENT
  Sex: Male

DRUGS (3)
  1. RISPERDAL [Suspect]
     Indication: DRUG USE FOR UNKNOWN INDICATION
     Route: 048
  2. DEPAKENE [Suspect]
     Indication: EPILEPSY
     Route: 048
  3. URBANYL [Suspect]
     Indication: EPILEPSY
     Route: 048

REACTIONS (4)
  - DEPRESSED MOOD [None]
  - ECHOLALIA [None]
  - PSYCHOMOTOR RETARDATION [None]
  - THROMBOCYTOPENIA [None]
